FAERS Safety Report 8960525 (Version 2)
Quarter: 2013Q1

REPORT INFORMATION
  Report Type: Spontaneous
  Country: JP (occurrence: None)
  Receive Date: 20121203
  Receipt Date: 20121227
  Transmission Date: 20140127
  Serious: Yes (Other)
  Sender: FDA-Public Use
  Company Number: JP-20120063

PATIENT
  Age: 71 Year
  Sex: Male

DRUGS (1)
  1. LIPIODOL ULTRA FLUID [Suspect]
     Indication: THERAPEUTIC EMBOLISATION
     Dosage: (1 IN 1 D)

REACTIONS (4)
  - Biloma [None]
  - Off label use [None]
  - Hepatic infection bacterial [None]
  - Hepatic cyst [None]
